FAERS Safety Report 7025168-2 (Version None)
Quarter: 2010Q3

REPORT INFORMATION
  Report Type: 
  Country: None (occurrence: None)
  Receive Date: 20100916
  Receipt Date: 20100729
  Transmission Date: 20110219
  Serious: Yes (Other)
  Sender: FDA-Public Use
  Company Number: DKLU1063138

PATIENT
  Age: 22 Year
  Sex: Female

DRUGS (1)
  1. SABRIL [Suspect]
     Indication: EPILEPSY
     Dosage: 3 IN 1 D, ORAL
     Route: 048
     Dates: start: 20100511, end: 20100617

REACTIONS (6)
  - CONVULSION [None]
  - DYSKINESIA [None]
  - HYPERHIDROSIS [None]
  - INSOMNIA [None]
  - TREMOR [None]
  - VOMITING [None]
